FAERS Safety Report 5079608-9 (Version None)
Quarter: 2006Q3

REPORT INFORMATION
  Report Type: 
  Country: None (occurrence: None)
  Receive Date: 20060814
  Receipt Date: 20060809
  Transmission Date: 20061208
  Serious: Yes (Life-Threatening)
  Sender: FDA-Public Use
  Company Number: 2006UW15976

PATIENT
  Age: 41 Year
  Sex: Female

DRUGS (2)
  1. SEROQUEL [Suspect]
     Route: 048
     Dates: start: 20060629, end: 20060806
  2. CLOZAPINE [Suspect]
     Dates: end: 20060712

REACTIONS (1)
  - NEUTROPHIL COUNT DECREASED [None]
